FAERS Safety Report 9462132 (Version 1)
Quarter: 2013Q3

REPORT INFORMATION
  Report Type: Spontaneous
  Country: US (occurrence: US)
  Receive Date: 20130816
  Receipt Date: 20130816
  Transmission Date: 20140515
  Serious: Yes (Hospitalization)
  Sender: FDA-Public Use
  Company Number: US-ABBOTT-13P-163-1131528-00

PATIENT
  Sex: Female
  Weight: 84.44 kg

DRUGS (4)
  1. SYNTHROID [Suspect]
     Indication: AUTOIMMUNE THYROIDITIS
     Route: 048
     Dates: start: 2001
  2. SYNTHROID [Suspect]
     Indication: HYPOTHYROIDISM
  3. TRAMADOL [Concomitant]
     Indication: INTERVERTEBRAL DISC PROTRUSION
  4. VALIUM [Concomitant]
     Indication: MUSCLE SPASMS

REACTIONS (4)
  - Benign neoplasm of thyroid gland [Recovered/Resolved]
  - Weight increased [Not Recovered/Not Resolved]
  - Food allergy [Unknown]
  - Food allergy [Unknown]
